FAERS Safety Report 13988994 (Version 1)
Quarter: 2017Q3

REPORT INFORMATION
  Report Type: Spontaneous
  Country: US (occurrence: US)
  Receive Date: 20170919
  Receipt Date: 20170919
  Transmission Date: 20171128
  Serious: No
  Sender: FDA-Public Use
  Company Number: None

PATIENT
  Age: 60 Year
  Sex: Male
  Weight: 85.5 kg

DRUGS (2)
  1. GADOLINIUM [Suspect]
     Active Substance: GADOLINIUM
     Indication: NUCLEAR MAGNETIC RESONANCE IMAGING
     Dosage: ?          OTHER ROUTE:INJECTED INTO VAIN?
     Route: 042
  2. BP MEDS [Concomitant]

REACTIONS (6)
  - Musculoskeletal disorder [None]
  - Pollakiuria [None]
  - Contrast media reaction [None]
  - Hypoaesthesia [None]
  - Paresis [None]
  - Dizziness [None]
